FAERS Safety Report 8168150-4 (Version None)
Quarter: 2012Q1

REPORT INFORMATION
  Report Type: 
  Country: None (occurrence: None)
  Receive Date: 20120227
  Receipt Date: 20120222
  Transmission Date: 20120608
  Serious: Yes (Death)
  Sender: FDA-Public Use
  Company Number: PHEH2012US004545

PATIENT
  Sex: Female

DRUGS (1)
  1. TOBI [Suspect]
     Indication: BRONCHITIS CHRONIC
     Dosage: 1 DF, Q12H FOR 3 WEEKS ON, THEN 3 WEEKS OFF
     Dates: start: 20111028

REACTIONS (1)
  - DEATH [None]
